FAERS Safety Report 11622468 (Version 1)
Quarter: 2015Q4

REPORT INFORMATION
  Report Type: Spontaneous
  Country: US (occurrence: US)
  Receive Date: 20151013
  Receipt Date: 20151013
  Transmission Date: 20160304
  Serious: No
  Sender: FDA-Public Use
  Company Number: US-JNJFOC-20150316235

PATIENT
  Age: 60 Year
  Sex: Male
  Weight: 59.42 kg

DRUGS (12)
  1. PROAIR HFA [Concomitant]
     Active Substance: ALBUTEROL SULFATE
     Indication: ASTHMA
     Dosage: 2 PUFFS AT NIGHT, 25 YEARS
     Route: 065
  2. OMEGA VITAMIN [Concomitant]
     Indication: NUTRITIONAL SUPPLEMENTATION
     Dosage: 15 YEARS
     Route: 065
  3. LIOTHYRONINE [Concomitant]
     Active Substance: LIOTHYRONINE
     Indication: HYPOTHYROIDISM
     Dosage: 2 YEARS
     Route: 065
  4. MULTIVITAMINS [Concomitant]
     Active Substance: VITAMINS
     Indication: NUTRITIONAL SUPPLEMENTATION
     Dosage: 15 YEARS
     Route: 065
  5. TYLENOL EXTRA STRENGTH [Suspect]
     Active Substance: ACETAMINOPHEN
     Indication: SLEEP DISORDER THERAPY
     Dosage: ONE TABLET AT NIGHT
     Route: 048
  6. LEVOTHYROXINE. [Concomitant]
     Active Substance: LEVOTHYROXINE
     Indication: HYPOTHYROIDISM
     Dosage: 2 YEARS
     Route: 065
  7. VITAMIN C [Concomitant]
     Active Substance: ASCORBIC ACID
     Indication: NUTRITIONAL SUPPLEMENTATION
     Dosage: 2 1/2 YEARS
     Route: 065
  8. TYLENOL EXTRA STRENGTH [Suspect]
     Active Substance: ACETAMINOPHEN
     Indication: HEADACHE
     Dosage: ONE TABLET AT NIGHT
     Route: 048
  9. ALL OTHER THERAPEUTICS [Concomitant]
     Active Substance: UNSPECIFIED INGREDIENT
     Indication: BLOOD TESTOSTERONE DECREASED
     Dosage: 2 1/2 YEARS
     Route: 061
  10. VITAMIN D [Concomitant]
     Active Substance: CHOLECALCIFEROL
     Indication: NUTRITIONAL SUPPLEMENTATION
     Dosage: 2 1/2 YEARS
     Route: 065
  11. HERBAL NOS [Concomitant]
     Active Substance: HERBALS
     Indication: NUTRITIONAL SUPPLEMENTATION
     Dosage: 12 PER DAY, 6 MONTHS
     Route: 065
  12. MILK THISTLE [Concomitant]
     Active Substance: MILK THISTLE
     Indication: NUTRITIONAL SUPPLEMENTATION
     Dosage: 2 PER DAY 6 MONTHS
     Route: 065

REACTIONS (5)
  - Product use issue [Unknown]
  - Inappropriate schedule of drug administration [Unknown]
  - Therapeutic response unexpected [Unknown]
  - Incorrect drug administration duration [Unknown]
  - Drug ineffective for unapproved indication [Unknown]
